FAERS Safety Report 8505392-X (Version None)
Quarter: 2012Q2

REPORT INFORMATION
  Report Type: 
  Country: None (occurrence: None)
  Receive Date: 20120405
  Receipt Date: 20091006
  Transmission Date: 20120825
  Serious: Yes (Other)
  Sender: FDA-Public Use
  Company Number: PHEH2009US13155

PATIENT
  Age: 54 Year
  Sex: Female
  Weight: 57.6 kg

DRUGS (9)
  1. SYMBICORT [Concomitant]
  2. LORAZEPAM [Concomitant]
  3. LORTAB [Concomitant]
  4. RECLAST [Suspect]
     Indication: OSTEOPOROSIS
     Dosage: 5 MG/100 ML OVER 15 MINUTES, INTRAVENOUS
     Route: 042
     Dates: start: 20090501, end: 20090501
  5. LISINOPRIL [Concomitant]
  6. FOSAMAX [Concomitant]
  7. ZANTAC [Concomitant]
  8. PREMARIN [Concomitant]
  9. ALBUTEROL [Concomitant]

REACTIONS (2)
  - STOMATITIS [None]
  - OSTEONECROSIS [None]
